FAERS Safety Report 4762292-9 (Version None)
Quarter: 2005Q3

REPORT INFORMATION
  Report Type: 
  Country: None (occurrence: None)
  Receive Date: 20050907
  Receipt Date: 20050829
  Transmission Date: 20060218
  Serious: Yes (Death, Hospitalization)
  Sender: FDA-Public Use
  Company Number: NO-BOEHRINGER INGELHEIM PHARMACEUTICALS, INC.-2005-SW-00371NO

PATIENT
  Sex: Male

DRUGS (5)
  1. MOBIC [Suspect]
     Indication: OSTEOARTHRITIS
     Route: 048
     Dates: start: 20050429, end: 20050520
  2. LASIX [Concomitant]
     Route: 048
  3. HALDOL [Concomitant]
     Route: 048
  4. IMOVANE [Concomitant]
     Route: 048
  5. NOBLIGAN [Concomitant]
     Route: 048

REACTIONS (4)
  - DUODENAL ULCER HAEMORRHAGE [None]
  - HAEMATOCHEZIA [None]
  - HAEMOGLOBIN DECREASED [None]
  - PNEUMONIA [None]
